FAERS Safety Report 4785303-3 (Version None)
Quarter: 2005Q3

REPORT INFORMATION
  Report Type: 
  Country: None (occurrence: None)
  Receive Date: 20050914
  Receipt Date: 20050207
  Transmission Date: 20060218
  Serious: Yes (Other)
  Sender: FDA-Public Use
  Company Number: 2002-10-0409

PATIENT
  Age: 79 Year
  Sex: Male

DRUGS (10)
  1. THALOMID [Suspect]
     Indication: MYELODYSPLASTIC SYNDROME
     Dosage: 100 MG, QD, ORAL
     Route: 047
     Dates: start: 20020903
  2. ARSENIC TRIOXIDE (ARSENIC TRIOXIDE) (INJECTION) [Suspect]
     Indication: MYELODYSPLASTIC SYNDROME
     Dosage: 0.25 MG/KG, QD X 5D/WK FOR 2 WKS, THEN 2 WKS OFF, INTRAVENOUS
     Route: 042
     Dates: start: 20020903
  3. NIFEDIPINE [Concomitant]
  4. ASA (ACETYLSALICYCLIC ACID) [Concomitant]
  5. IBUPROFEN [Concomitant]
  6. FOLIC ACID [Concomitant]
  7. VITAMIN B6 [Concomitant]
  8. SENOKOT [Concomitant]
  9. VITAMIN C (ASCORBIC ACID) [Concomitant]
  10. PYRIDOXINE (PYRIDOXINE) [Concomitant]

REACTIONS (1)
  - HERPES ZOSTER [None]
